FAERS Safety Report 12226196 (Version 1)
Quarter: 2016Q1

REPORT INFORMATION
  Report Type: Spontaneous
  Country: US (occurrence: US)
  Receive Date: 20160331
  Receipt Date: 20160331
  Transmission Date: 20160526
  Serious: Yes (Death)
  Sender: FDA-Public Use
  Company Number: US-ASTELLAS-2016US012152

PATIENT
  Age: 55 Year
  Sex: Male

DRUGS (1)
  1. PROGRAF [Suspect]
     Active Substance: TACROLIMUS\TACROLIMUS ANHYDROUS
     Indication: TRANSPLANT
     Dosage: 7 DF IN AM AND 6 DF IN PM, TWICE DAILY
     Route: 048
     Dates: start: 20150929

REACTIONS (1)
  - Death [Fatal]

NARRATIVE: CASE EVENT DATE: 20160306
